FAERS Safety Report 14556706 (Version 3)
Quarter: 2018Q4

REPORT INFORMATION
  Report Type: Spontaneous
  Country: US (occurrence: US)
  Receive Date: 20180221
  Receipt Date: 20181031
  Transmission Date: 20190204
  Serious: No
  Sender: FDA-Public Use
  Company Number: US-PFIZER INC-2018003508

PATIENT
  Age: 27 Year
  Sex: Female
  Weight: 66.3 kg

DRUGS (1)
  1. ELELYSO [Suspect]
     Active Substance: TALIGLUCERASE ALFA
     Dosage: 4000 UNITS EVERY 10 DAYS

REACTIONS (5)
  - Inflammation [Unknown]
  - Drug hypersensitivity [Unknown]
  - Malaise [Unknown]
  - Scar [Unknown]
  - Product use issue [Unknown]
